FAERS Safety Report 24936988 (Version 1)
Quarter: 2025Q1

REPORT INFORMATION
  Report Type: Report from Study
  Country: US (occurrence: US)
  Receive Date: 20250206
  Receipt Date: 20250206
  Transmission Date: 20250409
  Serious: Yes (Other)
  Sender: UCB
  Company Number: US-UCBSA-2025006487

PATIENT
  Sex: Female
  Weight: 77 kg

DRUGS (8)
  1. CERTOLIZUMAB PEGOL [Suspect]
     Active Substance: CERTOLIZUMAB PEGOL
     Indication: Rheumatoid arthritis
     Dosage: 400 MILLIGRAM, EV 2 WEEKS(QOW)
     Route: 058
     Dates: start: 202310
  2. CERTOLIZUMAB PEGOL [Suspect]
     Active Substance: CERTOLIZUMAB PEGOL
     Dosage: 400 MILLIGRAM, EV 4 WEEKS
     Route: 058
     Dates: start: 20240513
  3. METHOTREXATE [Suspect]
     Active Substance: METHOTREXATE
     Indication: Product used for unknown indication
     Dosage: 10 MILLIGRAM, ONCE DAILY (QD)
     Route: 048
     Dates: start: 202310, end: 202406
  4. COSENTYX [Concomitant]
     Active Substance: SECUKINUMAB
     Indication: Pustular psoriasis
     Dosage: 300 MILLIGRAM, MONTHLY (QM)
  5. FLUOXETINE [Concomitant]
     Active Substance: FLUOXETINE HYDROCHLORIDE
     Indication: Product used for unknown indication
     Dates: start: 20231222
  6. PROZAC [Concomitant]
     Active Substance: FLUOXETINE HYDROCHLORIDE
     Indication: Product used for unknown indication
     Dates: start: 20231222
  7. PREDNISONE [Concomitant]
     Active Substance: PREDNISONE
     Indication: Synovitis
     Dosage: 10 MILLIGRAM, ONCE DAILY (QD)
  8. PREDNISONE [Concomitant]
     Active Substance: PREDNISONE
     Dosage: 5 MILLIGRAM, ONCE DAILY (QD)

REACTIONS (2)
  - Rheumatoid arthritis [Unknown]
  - Fatigue [Unknown]

NARRATIVE: CASE EVENT DATE: 20230101
